FAERS Safety Report 11234419 (Version 1)
Quarter: 2015Q3

REPORT INFORMATION
  Report Type: Report from Study
  Country: FR (occurrence: FR)
  Receive Date: 20150702
  Receipt Date: 20150702
  Transmission Date: 20151125
  Serious: Yes (Death, Other)
  Sender: FDA-Public Use
  Company Number: FR-SA-2015SA092503

PATIENT
  Age: 75 Year
  Sex: Male

DRUGS (1)
  1. CAMPATH [Suspect]
     Active Substance: ALEMTUZUMAB
     Indication: T-CELL PROLYMPHOCYTIC LEUKAEMIA
     Dosage: 3 INJECTIONS/WEEK/30MG/ML
     Route: 042
     Dates: end: 20150326

REACTIONS (6)
  - Escherichia sepsis [Fatal]
  - Sinusitis [Unknown]
  - Febrile bone marrow aplasia [Recovered/Resolved]
  - Lung disorder [Recovered/Resolved]
  - Cytomegalovirus infection [Unknown]
  - Cachexia [Fatal]

NARRATIVE: CASE EVENT DATE: 20150224
